FAERS Safety Report 8293829-3 (Version None)
Quarter: 2012Q2

REPORT INFORMATION
  Report Type: 
  Country: None (occurrence: None)
  Receive Date: 20120418
  Receipt Date: 20120406
  Transmission Date: 20120825
  Serious: Yes (Other)
  Sender: FDA-Public Use
  Company Number: US-SANOFI-AVENTIS-2012SA024463

PATIENT
  Sex: Male

DRUGS (1)
  1. PLAVIX [Suspect]
     Dates: start: 20060101

REACTIONS (1)
  - MACULAR DEGENERATION [None]
